FAERS Safety Report 25386286 (Version 1)
Quarter: 2025Q2

REPORT INFORMATION
  Report Type: Spontaneous
  Country: US (occurrence: None)
  Receive Date: 20250530
  Receipt Date: 20250530
  Transmission Date: 20250716
  Serious: Yes (unspecified)
  Sender: FDA-CTU
  Company Number: None

PATIENT
  Age: 51 Year
  Sex: Female
  Weight: 70.65 kg

DRUGS (6)
  1. DOXYCYCLINE HYCLATE [Suspect]
     Active Substance: DOXYCYCLINE HYCLATE
     Indication: Sinusitis
     Dosage: OTHER QUANTITY : 20 CAPSULE(S);?FREQUENCY : TWICE A DAY;?
     Route: 048
     Dates: start: 20250526, end: 20250527
  2. fluticasone ns [Concomitant]
  3. CELEBREX [Concomitant]
     Active Substance: CELECOXIB
  4. MAGNESIUM GLYCINATE [Concomitant]
     Active Substance: MAGNESIUM GLYCINATE
  5. VITAMINS [Concomitant]
     Active Substance: VITAMINS
  6. ALLEGRA [Concomitant]
     Active Substance: FEXOFENADINE HYDROCHLORIDE

REACTIONS (5)
  - Oesophagitis [None]
  - Chest pain [None]
  - Eructation [None]
  - Flatulence [None]
  - Dysphagia [None]

NARRATIVE: CASE EVENT DATE: 20250527
